FAERS Safety Report 7048208-3 (Version None)
Quarter: 2010Q4

REPORT INFORMATION
  Report Type: 
  Country: None (occurrence: None)
  Receive Date: 20101015
  Receipt Date: 20100930
  Transmission Date: 20110411
  Serious: Yes (Other)
  Sender: FDA-Public Use
  Company Number: PHHY2010CA68407

PATIENT
  Sex: Female

DRUGS (1)
  1. ACLASTA/ZOLEDRONATE T29581+A+ [Suspect]
     Dosage: 5MG, ONCE YEARLY
     Route: 042
     Dates: start: 20091210

REACTIONS (1)
  - GALLBLADDER OPERATION [None]
